FAERS Safety Report 19157487 (Version 1)
Quarter: 2021Q2

REPORT INFORMATION
  Report Type: Report from Study
  Country: IT (occurrence: IT)
  Receive Date: 20210420
  Receipt Date: 20210420
  Transmission Date: 20210717
  Serious: Yes (Other)
  Sender: FDA-Public Use
  Company Number: IT-TEVA-2021-IT-1901516

PATIENT
  Age: 70 Year
  Sex: Male

DRUGS (8)
  1. KEYTRUDA [Suspect]
     Active Substance: PEMBROLIZUMAB
     Indication: LUNG NEOPLASM MALIGNANT
     Dosage: 200 MG
     Dates: start: 20210101
  2. GABAPENTIN MYLAN GENERICS 300 MG CAPSULE RIGIDE [Concomitant]
     Active Substance: GABAPENTIN
     Indication: BONE PAIN
  3. FENTANYL TRANSDERMAL SYSTEM [Concomitant]
     Active Substance: FENTANYL
     Indication: BONE PAIN
  4. ALIMTA [Suspect]
     Active Substance: PEMETREXED DISODIUM
     Indication: LUNG NEOPLASM MALIGNANT
     Dates: start: 20210101
  5. ZYLORIC 100 MG COMPRESSE [Concomitant]
     Active Substance: ALLOPURINOL
     Indication: HYPERURICAEMIA
  6. CARBOPLATINO TEVA [Suspect]
     Active Substance: CARBOPLATIN
     Indication: LUNG NEOPLASM MALIGNANT
     Dates: start: 20210101
  7. LAEVOLAC [Concomitant]
     Active Substance: LACTULOSE
     Indication: CONSTIPATION
  8. ATORVASTATINA ALTER 20 MG COMPRESSE RIVESTITE CON FILM [Concomitant]
     Indication: HYPERCHOLESTEROLAEMIA
     Route: 048

REACTIONS (10)
  - Dry mouth [Recovering/Resolving]
  - Pyrexia [Recovering/Resolving]
  - Monocytosis [Recovering/Resolving]
  - Retching [Recovering/Resolving]
  - Erysipelas [Recovering/Resolving]
  - Pruritus [Recovering/Resolving]
  - Eosinophilia [Recovering/Resolving]
  - Lymphopenia [Recovering/Resolving]
  - Leukopenia [Recovering/Resolving]
  - Anaemia [Recovering/Resolving]

NARRATIVE: CASE EVENT DATE: 20210101
